FAERS Safety Report 8270409-7 (Version None)
Quarter: 2012Q2

REPORT INFORMATION
  Report Type: 
  Country: None (occurrence: None)
  Receive Date: 20120410
  Receipt Date: 20120402
  Transmission Date: 20120825
  Serious: Yes (Congenital Anomaly)
  Sender: FDA-Public Use
  Company Number: NO-UCBSA-054664

PATIENT

DRUGS (1)
  1. LEVETIRACETAM [Suspect]
     Indication: EPILEPSY
     Dosage: DAILY DOSE: 2250 (FIRST TRIMESTER)
     Route: 064

REACTIONS (2)
  - PIERRE ROBIN SYNDROME [None]
  - FOETAL EXPOSURE DURING PREGNANCY [None]
